FAERS Safety Report 6792395-9 (Version None)
Quarter: 2010Q2

REPORT INFORMATION
  Report Type: 
  Country: None (occurrence: None)
  Receive Date: 20100624
  Receipt Date: 20080804
  Transmission Date: 20101027
  Serious: No
  Sender: FDA-Public Use
  Company Number: US-PFIZER INC-2008065174

PATIENT
  Sex: Male
  Weight: 86.18 kg

DRUGS (3)
  1. XALATAN [Suspect]
     Indication: GLAUCOMA
     Dates: start: 20080501
  2. ANTIHYPERTENSIVES [Concomitant]
     Indication: BLOOD PRESSURE ABNORMAL
  3. OPHTHALMOLOGICALS [Concomitant]

REACTIONS (1)
  - OCULAR HYPERAEMIA [None]
